FAERS Safety Report 5813441-2 (Version None)
Quarter: 2008Q3

REPORT INFORMATION
  Report Type: 
  Country: None (occurrence: None)
  Receive Date: 20080717
  Receipt Date: 20080708
  Transmission Date: 20090109
  Serious: Yes (Hospitalization, Other)
  Sender: FDA-Public Use
  Company Number: JP-ABBOTT-08P-087-0454997-00

PATIENT
  Sex: Male
  Weight: 62 kg

DRUGS (14)
  1. DEPAKENE [Suspect]
     Indication: CONVULSION
     Route: 048
     Dates: start: 20040101, end: 20080408
  2. CLOPIDOGREL [Suspect]
     Indication: PROPHYLAXIS
     Route: 048
     Dates: start: 20070517, end: 20080408
  3. CLOPIDOGREL [Suspect]
     Indication: CEREBRAL INFARCTION
  4. ACETYLSALICYLIC ACID SRT [Concomitant]
     Indication: PROPHYLAXIS
  5. ACETYLSALICYLIC ACID SRT [Concomitant]
     Indication: CEREBRAL INFARCTION
  6. CARVEDILOL [Concomitant]
     Indication: ARRHYTHMIA
     Route: 048
  7. SPIRONOLACTONE [Concomitant]
     Indication: MYOCARDIAL INFARCTION
     Route: 048
  8. NICORANDIL [Concomitant]
     Indication: ANGINA PECTORIS
     Route: 048
  9. REBAMIPIDE [Concomitant]
     Indication: PROPHYLAXIS AGAINST GASTROINTESTINAL ULCER
     Route: 048
  10. MEXILETINE HYDROCHLORIDE [Concomitant]
     Indication: ARRHYTHMIA
     Route: 048
  11. ISOSORBIDE DINITRATE [Concomitant]
     Indication: MYOCARDIAL INFARCTION
     Route: 048
  12. KALLIDINOGENASE [Concomitant]
     Indication: OCULAR VASCULAR DISORDER
     Route: 048
  13. PRAVASTATIN SODIUM [Concomitant]
     Indication: HYPERLIPIDAEMIA
     Route: 048
  14. INSULIN [Concomitant]
     Indication: DRUG USE FOR UNKNOWN INDICATION
     Route: 065

REACTIONS (1)
  - IDIOPATHIC THROMBOCYTOPENIC PURPURA [None]
